FAERS Safety Report 5809866-1 (Version None)
Quarter: 2008Q3

REPORT INFORMATION
  Report Type: 
  Country: None (occurrence: None)
  Receive Date: 20080715
  Receipt Date: 20080707
  Transmission Date: 20090109
  Serious: Yes (Hospitalization)
  Sender: FDA-Public Use
  Company Number: NO-ASTRAZENECA-2008SE03388

PATIENT
  Age: 22 Year
  Sex: Male

DRUGS (5)
  1. SEROQUEL [Interacting]
     Indication: PSYCHOTIC DISORDER
     Dosage: 300 + 500 MG
     Route: 048
     Dates: start: 20080301
  2. ANTABUSE [Interacting]
     Indication: ALCOHOL ABUSE
     Route: 048
     Dates: start: 20080522, end: 20080614
  3. NOZINAN [Suspect]
     Indication: ANXIETY
     Dosage: AS NEEDED; PATIENT NOTES 25-50 MG VESPERE FOR SLEEP
     Route: 048
  4. VALLERGAN [Suspect]
     Indication: SLEEP DISORDER
     Dosage: VESPERE, ACCORDING TO PATIENT NOTES
     Route: 048
  5. ZOLPIDEM [Concomitant]
     Indication: SLEEP DISORDER
     Route: 048

REACTIONS (2)
  - DRUG INTERACTION [None]
  - GRAND MAL CONVULSION [None]
